FAERS Safety Report 12523418 (Version 2)
Quarter: 2016Q3

REPORT INFORMATION
  Report Type: Report from Study
  Country: GB (occurrence: GB)
  Receive Date: 20160703
  Receipt Date: 20160910
  Transmission Date: 20161109
  Serious: Yes (Hospitalization, Other)
  Sender: FDA-Public Use
  Company Number: GB-AMGEN-GBRSL2016083164

PATIENT
  Sex: Female

DRUGS (1)
  1. ARANESP [Suspect]
     Active Substance: DARBEPOETIN ALFA
     Indication: PRODUCT USED FOR UNKNOWN INDICATION
     Dosage: 40 MUG, UNK
     Route: 065

REACTIONS (6)
  - Dialysis [Unknown]
  - Transfusion [Unknown]
  - Cardiac arrest [Unknown]
  - Fall [Recovered/Resolved]
  - Myocardial infarction [Unknown]
  - Rehabilitation therapy [Recovered/Resolved]
